FAERS Safety Report 10926186 (Version 1)
Quarter: 2015Q1

REPORT INFORMATION
  Report Type: Spontaneous
  Country: US (occurrence: None)
  Receive Date: 20150316
  Receipt Date: 20150316
  Transmission Date: 20150721
  Serious: Yes (Life-Threatening, Disabling, Other)
  Sender: FDA-Public Use
  Company Number: None

PATIENT
  Age: 48 Year
  Sex: Male
  Weight: 81.65 kg

DRUGS (5)
  1. VITAMIN D [Concomitant]
     Active Substance: CHOLECALCIFEROL
  2. ZORVOLEX [Concomitant]
     Active Substance: DICLOFENAC
  3. LEVAQUIN [Suspect]
     Active Substance: LEVOFLOXACIN
     Indication: ABDOMINAL PAIN UPPER
     Route: 042
     Dates: start: 20120905, end: 20120907
  4. OXYCODONE [Concomitant]
     Active Substance: OXYCODONE
  5. VALIUM [Concomitant]
     Active Substance: DIAZEPAM

REACTIONS (9)
  - Salmonellosis [None]
  - Hallucination [None]
  - Insomnia [None]
  - Malaise [None]
  - Tendon rupture [None]
  - Depression [None]
  - Clostridial infection [None]
  - Vomiting [None]
  - Pain [None]

NARRATIVE: CASE EVENT DATE: 20120905
